FAERS Safety Report 11128798 (Version 1)
Quarter: 2015Q2

REPORT INFORMATION
  Report Type: Report from Study
  Country: BR (occurrence: BR)
  Receive Date: 20150521
  Receipt Date: 20150521
  Transmission Date: 20150821
  Serious: Yes (Other)
  Sender: FDA-Public Use
  Company Number: PHHY2015BR056695

PATIENT
  Sex: Male
  Weight: 98 kg

DRUGS (2)
  1. DIOVAN [Suspect]
     Active Substance: VALSARTAN
     Indication: HYPERTENSION
     Dosage: 1 DF, QD (1 YEAR AGO)
     Route: 065
  2. DIOVAN [Suspect]
     Active Substance: VALSARTAN
     Dosage: 160 MG, UNK
     Route: 065

REACTIONS (6)
  - Gastrointestinal carcinoma [Unknown]
  - Hypotension [Unknown]
  - Blood pressure increased [Unknown]
  - Wrong technique in drug usage process [Unknown]
  - Fatigue [Unknown]
  - Weight decreased [Unknown]
